FAERS Safety Report 4538040-4 (Version None)
Quarter: 2004Q4

REPORT INFORMATION
  Report Type: 
  Country: None (occurrence: None)
  Receive Date: 20041221
  Receipt Date: 20041214
  Transmission Date: 20050328
  Serious: Yes (Other)
  Sender: FDA-Public Use
  Company Number: 200416039BCC

PATIENT
  Age: 24 Year
  Sex: Female
  Weight: 46.2669 kg

DRUGS (1)
  1. ASPIRIN [Suspect]
     Dosage: 32500 MG, ONCE, ORAL
     Route: 048
     Dates: start: 20041214

REACTIONS (3)
  - HYPOVENTILATION [None]
  - OVERDOSE [None]
  - VOMITING [None]
